FAERS Safety Report 24205194 (Version 1)
Quarter: 2024Q3

REPORT INFORMATION
  Report Type: Spontaneous
  Country: US (occurrence: US)
  Receive Date: 20240813
  Receipt Date: 20240813
  Transmission Date: 20241017
  Serious: Yes (Other)
  Sender: MYLAN
  Company Number: US-MYLANLABS-2024M1073098

PATIENT
  Age: 61 Year
  Sex: Male

DRUGS (1)
  1. METHOTREXATE [Suspect]
     Active Substance: METHOTREXATE
     Indication: Central nervous system lymphoma
     Dosage: 3500 MILLIGRAM/SQ. METER, 8?ROUNDS OF BIWEEKLY METHOTREXATE 3500?MG/M2
     Route: 065

REACTIONS (1)
  - Cutaneous lymphoma [Recovering/Resolving]
